FAERS Safety Report 10954063 (Version 1)
Quarter: 2015Q1

REPORT INFORMATION
  Report Type: Spontaneous
  Country: JP (occurrence: JP)
  Receive Date: 20150325
  Receipt Date: 20150325
  Transmission Date: 20150721
  Serious: Yes (Other)
  Sender: FDA-Public Use
  Company Number: PHJP2015JP002901

PATIENT
  Sex: Male

DRUGS (6)
  1. NEORAL [Suspect]
     Active Substance: CYCLOSPORINE
     Dosage: 75 MG, QD (3 CAPSULES DAILY)
     Route: 048
     Dates: start: 201405
  2. NEORAL [Suspect]
     Active Substance: CYCLOSPORINE
     Dosage: 100 MG (4 CAPSULES)
     Route: 048
  3. NEORAL [Suspect]
     Active Substance: CYCLOSPORINE
     Dosage: 125 MG, QD (5 CAPSULES DAILY)
     Route: 048
  4. NEORAL [Suspect]
     Active Substance: CYCLOSPORINE
     Dosage: UNK
     Route: 048
  5. NEORAL [Suspect]
     Active Substance: CYCLOSPORINE
     Indication: PRODUCT USED FOR UNKNOWN INDICATION
     Dosage: 150 MG, QD (6 CAPSULES DAILY)
     Route: 048
  6. CICLOSPORIN [Suspect]
     Active Substance: CYCLOSPORINE
     Indication: PRODUCT USED FOR UNKNOWN INDICATION
     Route: 065

REACTIONS (4)
  - Renal impairment [Unknown]
  - Incorrect dose administered [Unknown]
  - Pruritus [Unknown]
  - Drug effect decreased [Unknown]

NARRATIVE: CASE EVENT DATE: 201405
